FAERS Safety Report 6316850-0 (Version None)
Quarter: 2009Q3

REPORT INFORMATION
  Report Type: 
  Country: None (occurrence: None)
  Receive Date: 20090820
  Receipt Date: 20090816
  Transmission Date: 20100115
  Serious: Yes (Death)
  Sender: FDA-Public Use
  Company Number: IL-ROCHE-650567

PATIENT
  Age: 12 Year
  Sex: Female

DRUGS (2)
  1. TAMIFLU [Suspect]
     Dosage: STARTE DATE JUL/AUG 2009 AND STOPD DATE JUL/AUG 2009
     Route: 048
  2. ANTIBIOTIC NOS [Concomitant]
     Indication: PNEUMONIA

REACTIONS (2)
  - CARDIAC ARREST [None]
  - RESPIRATORY ARREST [None]
